FAERS Safety Report 22591445 (Version 4)
Quarter: 2023Q4

REPORT INFORMATION
  Report Type: Report from Study
  Country: US (occurrence: US)
  Receive Date: 20230612
  Receipt Date: 20231117
  Transmission Date: 20240110
  Serious: Yes (Other)
  Sender: FDA-Public Use
  Company Number: US-002147023-NVSC2023US133537

PATIENT
  Sex: Female

DRUGS (1)
  1. KESIMPTA [Suspect]
     Active Substance: OFATUMUMAB
     Indication: Multiple sclerosis
     Dosage: 20 MG, QMO
     Route: 058

REACTIONS (9)
  - Multiple sclerosis [Unknown]
  - Peripheral coldness [Unknown]
  - Fatigue [Unknown]
  - Visual impairment [Unknown]
  - Abdominal pain upper [Unknown]
  - Pyrexia [Recovering/Resolving]
  - Muscle spasms [Unknown]
  - Muscle twitching [Unknown]
  - Pain in extremity [Unknown]
